FAERS Safety Report 5227694-5 (Version None)
Quarter: 2007Q1

REPORT INFORMATION
  Report Type: 
  Country: None (occurrence: None)
  Receive Date: 20070202
  Receipt Date: 20070123
  Transmission Date: 20070707
  Serious: Yes (Other)
  Sender: FDA-Public Use
  Company Number: DE-JNJFOC-20070200474

PATIENT
  Age: 44 Year
  Sex: Male

DRUGS (5)
  1. IBUPROFEN [Suspect]
     Indication: RESPIRATORY TRACT INFECTION
     Route: 048
  2. IBUPROFEN [Suspect]
     Indication: BRONCHITIS
     Route: 048
  3. UNACID PD ORAL [Suspect]
     Indication: RESPIRATORY TRACT INFECTION
     Route: 048
  4. UNACID PD ORAL [Suspect]
     Indication: BRONCHITIS
     Route: 048
  5. HEDELIX [Concomitant]
     Route: 048

REACTIONS (18)
  - AGGRESSION [None]
  - AGITATION [None]
  - ALANINE AMINOTRANSFERASE INCREASED [None]
  - ANAEMIA [None]
  - BACTERIAL INFECTION [None]
  - BLOOD ALKALINE PHOSPHATASE INCREASED [None]
  - GAMMA-GLUTAMYLTRANSFERASE INCREASED [None]
  - HALLUCINATION [None]
  - HEADACHE [None]
  - HEARING IMPAIRED [None]
  - INSOMNIA [None]
  - INTRAOCULAR PRESSURE INCREASED [None]
  - LIVER FUNCTION TEST ABNORMAL [None]
  - MYALGIA [None]
  - PANOPHTHALMITIS [None]
  - PLATELET COUNT INCREASED [None]
  - SELF-MEDICATION [None]
  - TREATMENT NONCOMPLIANCE [None]
